FAERS Safety Report 5213011-3 (Version None)
Quarter: 2007Q1

REPORT INFORMATION
  Report Type: 
  Country: None (occurrence: None)
  Receive Date: 20070119
  Receipt Date: 20070110
  Transmission Date: 20070707
  Serious: Yes (Other)
  Sender: FDA-Public Use
  Company Number: 2007SE00138

PATIENT
  Age: 16623 Day
  Sex: Male
  Weight: 90 kg

DRUGS (1)
  1. MARCAINE [Suspect]
     Route: 037
     Dates: start: 20061130, end: 20061130

REACTIONS (1)
  - ANAESTHETIC COMPLICATION [None]
